FAERS Safety Report 21728466 (Version 1)
Quarter: 2022Q4

REPORT INFORMATION
  Report Type: Report from Study
  Country: US (occurrence: US)
  Receive Date: 20221214
  Receipt Date: 20221214
  Transmission Date: 20230113
  Serious: Yes (Other)
  Sender: FDA-Public Use
  Company Number: US-BAYER-2022A135072

PATIENT
  Age: 77 Year
  Sex: Female

DRUGS (4)
  1. VITRAKVI [Suspect]
     Active Substance: LAROTRECTINIB
     Indication: Thyroid neoplasm
     Dosage: 100 MG, BID
     Route: 048
     Dates: start: 20210127
  2. VITRAKVI [Suspect]
     Active Substance: LAROTRECTINIB
     Indication: Thyroid neoplasm
     Dosage: 25 MG, QD
     Route: 048
  3. IRON [Concomitant]
     Active Substance: IRON
     Indication: Anaemia
     Dosage: MONTHLY INFUSION
  4. VITAMINS NOS [Concomitant]
     Active Substance: VITAMINS
     Indication: Anaemia
     Dosage: MONTHLY INFUSION

REACTIONS (17)
  - Neuropathy peripheral [None]
  - Hypoaesthesia [Not Recovered/Not Resolved]
  - Pain in extremity [Not Recovered/Not Resolved]
  - Burning sensation [Not Recovered/Not Resolved]
  - Paraesthesia [Not Recovered/Not Resolved]
  - Musculoskeletal stiffness [Not Recovered/Not Resolved]
  - Arthralgia [Not Recovered/Not Resolved]
  - Peripheral swelling [Not Recovered/Not Resolved]
  - Pain in extremity [Not Recovered/Not Resolved]
  - Burning sensation [Not Recovered/Not Resolved]
  - Oropharyngeal pain [Not Recovered/Not Resolved]
  - Pharyngeal erythema [Not Recovered/Not Resolved]
  - Pernicious anaemia [None]
  - Arthralgia [Not Recovered/Not Resolved]
  - Pain [Not Recovered/Not Resolved]
  - Muscle spasms [Not Recovered/Not Resolved]
  - Product dose omission issue [None]
